FAERS Safety Report 6167492-1 (Version None)
Quarter: 2009Q2

REPORT INFORMATION
  Report Type: 
  Country: None (occurrence: None)
  Receive Date: 20090424
  Receipt Date: 20090422
  Transmission Date: 20091009
  Serious: Yes (Hospitalization)
  Sender: FDA-Public Use
  Company Number: HQWYE357116MAR06

PATIENT
  Age: 56 Year
  Sex: Male

DRUGS (12)
  1. AMIODARONE HYDROCHLORIDE [Interacting]
     Indication: SUPRAVENTRICULAR TACHYCARDIA
     Route: 048
  2. AMIODARONE HYDROCHLORIDE [Interacting]
     Route: 048
  3. AMIODARONE HYDROCHLORIDE [Interacting]
     Route: 048
  4. CEFTRIAXONE [Concomitant]
     Indication: PNEUMONIA
     Dosage: 1 G; FREQUENCY NOT SPECIFIED
     Route: 042
  5. SIMVASTATIN [Interacting]
     Route: 048
  6. SIMVASTATIN [Interacting]
     Route: 048
  7. AMIODARONE HYDROCHLORIDE [Suspect]
     Dosage: DOSE AND FREQUENCY NOT SPECIFIED
     Route: 042
  8. AMLODIPINE [Concomitant]
     Route: 065
  9. FERROUS SULFATE TAB [Concomitant]
     Dosage: 600 MG; FREQUENCY NOT SPECIFIED
     Route: 065
  10. LANSOPRAZOLE [Concomitant]
     Dosage: 30 MG; FREQUENCY NOT SPECIFIED
     Route: 065
  11. CLARITHROMYCIN [Interacting]
     Indication: PNEUMONIA
     Route: 048
  12. ASPIRIN [Concomitant]
     Route: 065

REACTIONS (4)
  - BLOOD CREATINE PHOSPHOKINASE INCREASED [None]
  - DRUG INTERACTION [None]
  - LIVER FUNCTION TEST ABNORMAL [None]
  - MYOPATHY [None]
